FAERS Safety Report 4391049-6 (Version None)
Quarter: 2004Q3

REPORT INFORMATION
  Report Type: 
  Country: None (occurrence: None)
  Receive Date: 20040702
  Receipt Date: 20040702
  Transmission Date: 20050211
  Serious: Yes (Hospitalization)
  Sender: FDA-Public Use
  Company Number: None

PATIENT
  Age: 59 Year
  Sex: Male
  Weight: 86.1834 kg

DRUGS (2)
  1. TAXOL [Suspect]
     Indication: CARCINOMA
     Dates: start: 20040607, end: 20040628
  2. CARBOPLATIN [Concomitant]

REACTIONS (14)
  - ANAPHYLACTIC REACTION [None]
  - ANXIETY [None]
  - ASTHENIA [None]
  - CHROMATURIA [None]
  - COUGH [None]
  - DISCOMFORT [None]
  - DYSPNOEA [None]
  - HICCUPS [None]
  - HYPERHIDROSIS [None]
  - PAINFUL RESPIRATION [None]
  - PHARYNGOLARYNGEAL PAIN [None]
  - RASH ERYTHEMATOUS [None]
  - SEPSIS [None]
  - TACHYCARDIA [None]
